FAERS Safety Report 10428127 (Version 2)
Quarter: 2014Q3

REPORT INFORMATION
  Report Type: Spontaneous
  Country: US (occurrence: None)
  Receive Date: 20140829
  Receipt Date: 20140923
  Transmission Date: 20150326
  Serious: Yes (Hospitalization)
  Sender: FDA-Public Use
  Company Number: US-H14001-14-00436

PATIENT
  Age: 74 Year
  Sex: Female

DRUGS (15)
  1. GLUMETZA [Concomitant]
     Active Substance: METFORMIN HYDROCHLORIDE
  2. ASPIRINE (ACETYLSALICYLIC ACID) [Concomitant]
  3. DECADRON [Suspect]
     Active Substance: DEXAMETHASONE
     Indication: PLASMA CELL MYELOMA
     Dosage: 10 MG, 1 IN 1 WK), INTRAVENOUS (NOT OTHERWISE SPECIFIED)?
     Route: 042
     Dates: start: 20140404
  4. HYZAAR (HYZAAR) (TABLETS) (HYDROCHLOROTHIAZIDE, LOSARTAN POTASSIUM) [Concomitant]
  5. CATAPRES (CLONIDINE) [Concomitant]
  6. CARFILZOMIB [Suspect]
     Active Substance: CARFILZOMIB
     Indication: PRODUCT USED FOR UNKNOWN INDICATION
     Dosage: 20 MG/M2, 1 IN 1 WK, INTRAVENOUS (NOT OTHERWISE SPECIFIED)?
     Route: 042
     Dates: start: 20140404
  7. TESSALON (BENZONATATE) [Concomitant]
  8. BYSTOLIC [Concomitant]
     Active Substance: NEBIVOLOL HYDROCHLORIDE
  9. COMPAZINE [Suspect]
     Active Substance: PROCHLORPERAZINE MALEATE
  10. ZOVIRAX (ACICLOVIR) [Concomitant]
     Active Substance: ACYCLOVIR
  11. ROBITUSSIN AC (CODEINE PHOS.W/GUAIFENESIN/PHENIRAMINE MAL.) (SYRUP) [Concomitant]
  12. PRILOSEC (OMEPRAZOLE) [Concomitant]
     Active Substance: OMEPRAZOLE MAGNESIUM
  13. NORVASC [Concomitant]
     Active Substance: AMLODIPINE BESYLATE
  14. LASIX [Concomitant]
     Active Substance: FUROSEMIDE
  15. ZOCOR [Concomitant]
     Active Substance: SIMVASTATIN

REACTIONS (5)
  - Device malfunction [None]
  - Pyrexia [None]
  - Cough [None]
  - Dyspnoea [None]
  - Pleural effusion [None]

NARRATIVE: CASE EVENT DATE: 20140414
